FAERS Safety Report 6810764-5 (Version None)
Quarter: 2010Q2

REPORT INFORMATION
  Report Type: 
  Country: None (occurrence: None)
  Receive Date: 20100630
  Receipt Date: 20070629
  Transmission Date: 20101027
  Serious: No
  Sender: FDA-Public Use
  Company Number: US-PFIZER INC-2007052568

PATIENT
  Sex: Female
  Weight: 53.636 kg

DRUGS (3)
  1. ESTRING [Suspect]
     Indication: PAIN
     Dates: start: 20070422
  2. ALL OTHER THERAPEUTIC PRODUCTS [Concomitant]
  3. ALL OTHER THERAPEUTIC PRODUCTS [Concomitant]

REACTIONS (2)
  - DRUG EFFECT DECREASED [None]
  - DYSPAREUNIA [None]
